FAERS Safety Report 9476897 (Version 1)
Quarter: 2013Q3

REPORT INFORMATION
  Report Type: Spontaneous
  Country: US (occurrence: US)
  Receive Date: 20130826
  Receipt Date: 20130826
  Transmission Date: 20140515
  Serious: Yes (Death)
  Sender: FDA-Public Use
  Company Number: US-GLAXOSMITHKLINE-A1038975A

PATIENT
  Age: 66 Year
  Sex: Male

DRUGS (1)
  1. TAFINLAR [Suspect]
     Indication: METASTASES TO LUNG
     Dosage: 150MG TWICE PER DAY
     Route: 048
     Dates: start: 20130720

REACTIONS (1)
  - Death [Fatal]
